FAERS Safety Report 5793217-5 (Version None)
Quarter: 2008Q2

REPORT INFORMATION
  Report Type: 
  Country: None (occurrence: None)
  Receive Date: 20080627
  Receipt Date: 20080617
  Transmission Date: 20081010
  Serious: Yes (Death, Other)
  Sender: FDA-Public Use
  Company Number: JP-ABBOTT-08P-087-0458909-00

PATIENT
  Age: 79 Year
  Sex: Male

DRUGS (4)
  1. LEUPLIN SR FOR INJECTION KIT [Suspect]
     Indication: PROSTATE CANCER STAGE IV
     Route: 058
     Dates: start: 20060619, end: 20070105
  2. BICALUTAMIDE [Concomitant]
     Indication: PROSTATE CANCER STAGE IV
     Route: 048
     Dates: start: 20060619, end: 20070201
  3. OXYCODONE HCL [Concomitant]
     Indication: CANCER PAIN
     Route: 048
     Dates: start: 20060710, end: 20070201
  4. LOXOPROFEN [Concomitant]
     Indication: CANCER PAIN
     Route: 048
     Dates: start: 20060904, end: 20070201

REACTIONS (9)
  - BLOOD PRESSURE DECREASED [None]
  - DEPRESSED LEVEL OF CONSCIOUSNESS [None]
  - GENERAL PHYSICAL HEALTH DETERIORATION [None]
  - METASTASES TO LUNG [None]
  - PLEURAL DISORDER [None]
  - PLEURAL HAEMORRHAGE [None]
  - PROSTATIC SPECIFIC ANTIGEN INCREASED [None]
  - PULMONARY MASS [None]
  - RESPIRATORY FAILURE [None]
